FAERS Safety Report 13896033 (Version 1)
Quarter: 2017Q3

REPORT INFORMATION
  Report Type: Spontaneous
  Country: US (occurrence: US)
  Receive Date: 20170823
  Receipt Date: 20170823
  Transmission Date: 20171127
  Serious: No
  Sender: FDA-Public Use
  Company Number: US-TEVA-756734ACC

PATIENT
  Age: 44 Year
  Sex: Male

DRUGS (1)
  1. METOPROLOL SUCCINATE. [Suspect]
     Active Substance: METOPROLOL SUCCINATE

REACTIONS (1)
  - Heart rate increased [Unknown]
